FAERS Safety Report 9971398 (Version 2)
Quarter: 2014Q1

REPORT INFORMATION
  Report Type: Report from Study
  Country: US (occurrence: US)
  Receive Date: 20140306
  Receipt Date: 20140306
  Transmission Date: 20141002
  Serious: No
  Sender: FDA-Public Use
  Company Number: US-ABBVIE-13P-163-1100663-00

PATIENT
  Age: 53 Year
  Sex: Female
  Weight: 65.83 kg

DRUGS (12)
  1. HUMIRA [Suspect]
     Indication: COLITIS ULCERATIVE
     Dates: start: 20130404
  2. INSTAFLEX [Concomitant]
     Indication: MOVEMENT DISORDER
  3. INSTAFLEX [Concomitant]
     Indication: ARTHROPATHY
  4. ASHWAGANDHA [Concomitant]
     Indication: STRESS
  5. KYOLIC AGED GARLIC EXTRACT AND CURCUMIN [Concomitant]
     Indication: INFLAMMATORY BOWEL DISEASE
  6. OMEGA [Concomitant]
     Indication: VITAMIN SUPPLEMENTATION
  7. VSL #3 PROBIOTIC [Concomitant]
     Indication: COLITIS ULCERATIVE
     Dosage: 1 PACKET DAILY
  8. VITAMIN D [Concomitant]
     Indication: PRODUCT USED FOR UNKNOWN INDICATION
     Dosage: 2000 IU DAILY
  9. B12/B6/FOLIC ACID [Concomitant]
     Indication: PRODUCT USED FOR UNKNOWN INDICATION
     Dosage: SUPPLEMENT
  10. CALCIUM WITH VITAMIN D GUMMY CHEWS [Concomitant]
     Indication: PRODUCT USED FOR UNKNOWN INDICATION
  11. IRON [Concomitant]
     Indication: PRODUCT USED FOR UNKNOWN INDICATION
  12. TOPICAL PAPAYA [Concomitant]
     Indication: UNEVALUABLE EVENT
     Dosage: 4 CHEWS AFTER MEALS

REACTIONS (9)
  - Haematochezia [Not Recovered/Not Resolved]
  - Injection site pain [Not Recovered/Not Resolved]
  - Colitis ulcerative [Not Recovered/Not Resolved]
  - Abdominal pain [Not Recovered/Not Resolved]
  - Diarrhoea [Not Recovered/Not Resolved]
  - Diarrhoea [Recovering/Resolving]
  - No therapeutic response [Unknown]
  - Injection site reaction [Unknown]
  - Injection site haemorrhage [Unknown]
